FAERS Safety Report 22619824 (Version 1)
Quarter: 2023Q2

REPORT INFORMATION
  Report Type: Spontaneous
  Country: US (occurrence: None)
  Receive Date: 20230616
  Receipt Date: 20230616
  Transmission Date: 20230722
  Serious: Yes (Hospitalization, Other)
  Sender: FDA-Public Use
  Company Number: None

PATIENT
  Age: 72 Year
  Sex: Male
  Weight: 84.6 kg

DRUGS (1)
  1. FLUTICASONE PROPIONATE [Suspect]
     Active Substance: FLUTICASONE PROPIONATE
     Indication: Eustachian tube obstruction
     Dosage: OTHER QUANTITY : 1 SPRAY(S);?FREQUENCY : TWICE A DAY;?OTHER ROUTE : INTO EACH NOSTRIL;?
     Route: 050
     Dates: start: 20230601, end: 20230615

REACTIONS (4)
  - Benign prostatic hyperplasia [None]
  - Urinary retention [None]
  - Prostatomegaly [None]
  - Condition aggravated [None]

NARRATIVE: CASE EVENT DATE: 20230615
